FAERS Safety Report 6268475-3 (Version None)
Quarter: 2009Q3

REPORT INFORMATION
  Report Type: 
  Country: None (occurrence: None)
  Receive Date: 20090709
  Receipt Date: 20090709
  Transmission Date: 20100115
  Serious: Yes (Hospitalization)
  Sender: FDA-Public Use
  Company Number: None

PATIENT
  Age: 70 Year
  Sex: Female
  Weight: 44.96 kg

DRUGS (25)
  1. LEVOFLOXACIN [Suspect]
     Indication: PNEUMONIA
     Dosage: 750MG ONE DOSE IV
     Route: 042
     Dates: start: 20090630, end: 20090630
  2. LEVOFLOXACIN [Suspect]
     Indication: URINARY TRACT INFECTION
     Dosage: 750MG ONE DOSE IV
     Route: 042
     Dates: start: 20090630, end: 20090630
  3. LEVOFLOXACIN [Suspect]
     Indication: PNEUMONIA
     Dosage: 500MG Q 24H IV
     Route: 042
     Dates: start: 20090701, end: 20090701
  4. LEVOFLOXACIN [Suspect]
     Indication: URINARY TRACT INFECTION
     Dosage: 500MG Q 24H IV
     Route: 042
     Dates: start: 20090701, end: 20090701
  5. CEFTRIAXONE [Concomitant]
  6. VANCOMYCIN [Concomitant]
  7. FLUTICASONE/SALMETEROL [Concomitant]
  8. ALBUTEROL [Concomitant]
  9. IPRATROPIUM BROMIDE AND ALBUTEROL SULFATE [Concomitant]
  10. DALTEPARIN SODIUM [Concomitant]
  11. ACETAMINOPHEN [Concomitant]
  12. FENTANYL-100 [Concomitant]
  13. FENTANYL CITRATE [Concomitant]
  14. NORTRIPTYLINE HCL [Concomitant]
  15. PROCHLORPERAZINE [Concomitant]
  16. ZOLPIDEM [Concomitant]
  17. DEXTROSE-50% WATER [Concomitant]
  18. MAGNESIUM SULFATE [Concomitant]
  19. ARTIFICIAL TEAR OINTMENT [Concomitant]
  20. DOCUSATE SODIUM [Concomitant]
  21. PANTOPRAZOLE SODIUM [Concomitant]
  22. LEVOTHYROXINE SODIUM [Concomitant]
  23. M.V.I. [Concomitant]
  24. THIAMINE HCL [Concomitant]
  25. FOLIC ACID [Concomitant]

REACTIONS (1)
  - ELECTROCARDIOGRAM QT PROLONGED [None]
